FAERS Safety Report 7637500-7 (Version None)
Quarter: 2011Q3

REPORT INFORMATION
  Report Type: 
  Country: None (occurrence: None)
  Receive Date: 20110726
  Receipt Date: 20110715
  Transmission Date: 20111222
  Serious: Yes (Other)
  Sender: FDA-Public Use
  Company Number: PHHY2011US64696

PATIENT

DRUGS (1)
  1. FEMARA [Suspect]

REACTIONS (1)
  - NEUROPATHY PERIPHERAL [None]
